FAERS Safety Report 21141894 (Version 1)
Quarter: 2022Q3

REPORT INFORMATION
  Report Type: Spontaneous
  Country: US (occurrence: None)
  Receive Date: 20220727
  Receipt Date: 20220727
  Transmission Date: 20221027
  Serious: Yes (Other)
  Sender: FDA-Public Use
  Company Number: None

PATIENT
  Sex: Male
  Weight: 87.75 kg

DRUGS (2)
  1. BRAFTOVI [Suspect]
     Active Substance: ENCORAFENIB
     Indication: Metastases to skin
     Dosage: FREQUENCY : DAILY;?
     Route: 048
     Dates: start: 20220428
  2. MEKTOVI [Suspect]
     Active Substance: BINIMETINIB
     Indication: Metastases to skin
     Dosage: FREQUENCY : TWICE A DAY;?
     Route: 048
     Dates: start: 20220428

REACTIONS (4)
  - Tinnitus [None]
  - Nausea [None]
  - Vomiting [None]
  - Rash [None]
